FAERS Safety Report 4413910-6 (Version None)
Quarter: 2004Q3

REPORT INFORMATION
  Report Type: 
  Country: None (occurrence: None)
  Receive Date: 20040802
  Receipt Date: 20040723
  Transmission Date: 20050211
  Serious: Yes (Other)
  Sender: FDA-Public Use
  Company Number: 2004UW12808

PATIENT
  Age: 51 Year
  Sex: Male

DRUGS (2)
  1. CRESTOR [Suspect]
     Dosage: 10 MG DAILY PO
     Route: 048
     Dates: start: 20031101
  2. ASPIRIN [Concomitant]

REACTIONS (7)
  - BURNING SENSATION [None]
  - CHEILITIS [None]
  - DRY MOUTH [None]
  - LIP DRY [None]
  - MARKEDLY REDUCED DIETARY INTAKE [None]
  - ORAL DISCOMFORT [None]
  - STOMATITIS [None]
